FAERS Safety Report 5024269-8 (Version None)
Quarter: 2006Q2

REPORT INFORMATION
  Report Type: 
  Country: None (occurrence: None)
  Receive Date: 20060607
  Receipt Date: 20060524
  Transmission Date: 20061013
  Serious: Yes (Life-Threatening, Hospitalization, Disabling)
  Sender: FDA-Public Use
  Company Number: 2006RR-02401

PATIENT
  Age: 32 Year
  Sex: Male
  Weight: 51 kg

DRUGS (1)
  1. IBUPROFEN [Suspect]
     Indication: HEADACHE
     Dosage: UP TO 12/DAY, ORAL
     Route: 048
     Dates: start: 20031201, end: 20060301

REACTIONS (4)
  - HYPOPROTEINAEMIA [None]
  - INTESTINAL ULCER [None]
  - IRON DEFICIENCY ANAEMIA [None]
  - OEDEMA [None]
